FAERS Safety Report 7757174-4 (Version None)
Quarter: 2011Q3

REPORT INFORMATION
  Report Type: 
  Country: None (occurrence: None)
  Receive Date: 20110916
  Receipt Date: 20110902
  Transmission Date: 20111222
  Serious: Yes (Hospitalization)
  Sender: FDA-Public Use
  Company Number: PHHY2011FR79791

PATIENT
  Sex: Male

DRUGS (7)
  1. ADENURIC [Concomitant]
     Dosage: 1 DF, QD
     Route: 048
  2. ANAFRANIL [Suspect]
     Dosage: 150 MG, QD
     Route: 048
     Dates: end: 20110822
  3. ABILIFY [Suspect]
     Dosage: 15 MG, BID
     Route: 048
  4. EFFEXOR [Suspect]
     Dosage: 37.5 MG, QD
  5. EFFEXOR [Suspect]
     Dosage: 75 MG, QD
     Route: 048
  6. FENOFIBRATE [Concomitant]
     Dosage: 1 DF, QD
     Route: 048
  7. EXFORGE [Suspect]
     Dosage: 1 DF, QD
     Route: 048
     Dates: end: 20110822

REACTIONS (7)
  - ASTHENIA [None]
  - HYPONATRAEMIA [None]
  - HYPOTHERMIA [None]
  - DEHYDRATION [None]
  - BLOOD CREATINE INCREASED [None]
  - ORTHOSTATIC HYPOTENSION [None]
  - DIZZINESS POSTURAL [None]
